FAERS Safety Report 4471000-0 (Version None)
Quarter: 2004Q4

REPORT INFORMATION
  Report Type: 
  Country: None (occurrence: None)
  Receive Date: 20041011
  Receipt Date: 20020212
  Transmission Date: 20050328
  Serious: Yes (Hospitalization)
  Sender: FDA-Public Use
  Company Number: US-ROCHE-306991

PATIENT
  Age: 40 Year
  Sex: Male
  Weight: 71 kg

DRUGS (14)
  1. ENFUVIRTIDE [Suspect]
     Indication: HIV INFECTION
     Route: 058
     Dates: start: 20010605
  2. AMPRENAVIR [Concomitant]
     Dates: start: 20010605
  3. RITONAVIR [Concomitant]
     Dates: start: 20010605
  4. DDI [Concomitant]
     Dates: start: 20010605
  5. EPIVIR [Concomitant]
     Dates: start: 20010605
  6. TESTOSTERONE [Concomitant]
     Route: 030
     Dates: start: 20000708
  7. MARINOL [Concomitant]
     Dosage: DOSE ALSO REPORTED AS 5 MG PRN.
     Dates: start: 19960410
  8. REMERON [Concomitant]
     Dates: start: 19991214
  9. VIAGRA [Concomitant]
     Dates: start: 20000112
  10. ACYCLOVIR [Concomitant]
     Dates: start: 20010402
  11. CELEXA [Concomitant]
     Dates: start: 20000711
  12. CALCIUM CARBONATE [Concomitant]
     Dates: start: 20000905
  13. CITRACAL [Concomitant]
     Dosage: TWO TBSP BID PRN.
     Dates: start: 19991118
  14. SUDAFED S.A. [Concomitant]
     Dosage: PRN.

REACTIONS (10)
  - ANAL ABSCESS [None]
  - ANAL FISTULA [None]
  - CHILLS [None]
  - HEADACHE [None]
  - NAUSEA [None]
  - PHOTOPHOBIA [None]
  - PROCTALGIA [None]
  - PYREXIA [None]
  - RECTAL ABSCESS [None]
  - VOMITING [None]
